FAERS Safety Report 12589478 (Version 3)
Quarter: 2017Q1

REPORT INFORMATION
  Report Type: Report from Study
  Country: US (occurrence: US)
  Receive Date: 20160725
  Receipt Date: 20170105
  Transmission Date: 20170428
  Serious: Yes (Hospitalization, Other)
  Sender: FDA-Public Use
  Company Number: US-BAYER-2015-086946

PATIENT
  Age: 61 Year
  Sex: Female
  Weight: 99.77 kg

DRUGS (11)
  1. ADEMPAS [Suspect]
     Active Substance: RIOCIGUAT
     Indication: PULMONARY HYPERTENSION
     Dosage: 1 MG, TID
     Route: 048
     Dates: start: 20150305
  2. ADEMPAS [Suspect]
     Active Substance: RIOCIGUAT
     Indication: PULMONARY HYPERTENSION
     Dosage: 2.5 MG, TID
     Route: 048
  3. LETAIRIS [Concomitant]
     Active Substance: AMBRISENTAN
     Dosage: UNK
  4. ADEMPAS [Suspect]
     Active Substance: RIOCIGUAT
     Indication: PULMONARY HYPERTENSION
     Dosage: 1.5 MG, TID
     Route: 048
  5. ADEMPAS [Suspect]
     Active Substance: RIOCIGUAT
     Indication: PULMONARY HYPERTENSION
     Dosage: 2.5 MG, TID
     Route: 048
  6. ADEMPAS [Suspect]
     Active Substance: RIOCIGUAT
     Indication: PULMONARY HYPERTENSION
     Dosage: 2 MG, TID
     Route: 048
  7. COUMADIN [Concomitant]
     Active Substance: WARFARIN SODIUM
     Dosage: UNK
  8. ADEMPAS [Suspect]
     Active Substance: RIOCIGUAT
     Indication: PULMONARY HYPERTENSION
     Dosage: UNK
     Route: 048
  9. ADEMPAS [Suspect]
     Active Substance: RIOCIGUAT
     Indication: PULMONARY HYPERTENSION
     Dosage: UNK
     Route: 048
     Dates: start: 20150304
  10. ADEMPAS [Suspect]
     Active Substance: RIOCIGUAT
     Indication: PULMONARY HYPERTENSION
     Dosage: 2.5 MG, TID
     Route: 048
  11. ADEMPAS [Suspect]
     Active Substance: RIOCIGUAT
     Indication: PULMONARY HYPERTENSION
     Dosage: 2.5 MG, TID
     Route: 048

REACTIONS (43)
  - Unresponsive to stimuli [None]
  - Pneumonia [None]
  - Anaemia [None]
  - Asthenia [None]
  - Anxiety [Unknown]
  - Crying [Unknown]
  - Peripheral swelling [Unknown]
  - Nausea [None]
  - Malaise [Unknown]
  - Asthenia [Unknown]
  - Endotracheal intubation [None]
  - Constipation [Unknown]
  - Fatigue [Unknown]
  - Pulmonary arterial hypertension [Recovering/Resolving]
  - Oxygen saturation decreased [None]
  - Blood pressure abnormal [Unknown]
  - Retching [None]
  - Feeling abnormal [None]
  - Dyspnoea [Unknown]
  - Weight increased [Unknown]
  - Dyspepsia [Unknown]
  - Pain [Not Recovered/Not Resolved]
  - Fluid retention [Unknown]
  - Anaemia [Unknown]
  - Pneumonia [Unknown]
  - Cough [None]
  - Pneumonia [Recovering/Resolving]
  - Lung infection [Unknown]
  - Stress [None]
  - Insomnia [Unknown]
  - Nausea [Unknown]
  - Pneumonia [Unknown]
  - Lung infection [Recovering/Resolving]
  - Diarrhoea [Unknown]
  - Headache [None]
  - Dizziness [None]
  - Nasal congestion [Unknown]
  - Oxygen supplementation [Recovering/Resolving]
  - Fluid retention [Recovering/Resolving]
  - Swelling [Unknown]
  - Restless legs syndrome [None]
  - Memory impairment [None]
  - Dyspnoea [Unknown]

NARRATIVE: CASE EVENT DATE: 2015
